FAERS Safety Report 7775082-X (Version None)
Quarter: 2011Q3

REPORT INFORMATION
  Report Type: 
  Country: None (occurrence: None)
  Receive Date: 20110923
  Receipt Date: 20110919
  Transmission Date: 20111222
  Serious: Yes (Death, Life-Threatening, Hospitalization)
  Sender: FDA-Public Use
  Company Number: JP-JNJFOC-20110106264

PATIENT
  Sex: Female
  Weight: 57 kg

DRUGS (42)
  1. METHYCOBAL [Concomitant]
     Indication: NEUROPATHY PERIPHERAL
     Route: 048
     Dates: start: 20080101, end: 20110117
  2. BACTRIM [Concomitant]
     Indication: INTERSTITIAL LUNG DISEASE
     Route: 041
     Dates: start: 20110117, end: 20110125
  3. FUTHAN [Concomitant]
     Indication: DISSEMINATED INTRAVASCULAR COAGULATION
     Route: 041
     Dates: start: 20110123, end: 20110125
  4. PREDNISOLONE [Concomitant]
     Indication: INTERSTITIAL LUNG DISEASE
     Route: 041
     Dates: start: 20110203, end: 20110221
  5. DOXIL [Suspect]
     Indication: OVARIAN CANCER RECURRENT
     Route: 042
     Dates: start: 20101124, end: 20101124
  6. BACTRIM [Concomitant]
     Indication: PLATELET COUNT DECREASED
     Route: 041
     Dates: start: 20110117, end: 20110125
  7. SOLU-MEDROL [Concomitant]
     Indication: INTERSTITIAL LUNG DISEASE
     Route: 041
     Dates: start: 20110117, end: 20110119
  8. SOLU-MEDROL [Concomitant]
     Route: 041
     Dates: start: 20110124, end: 20110126
  9. ELASPOL [Concomitant]
     Indication: INTERSTITIAL LUNG DISEASE
     Route: 041
     Dates: start: 20110117, end: 20110123
  10. PREDOPA [Concomitant]
     Route: 041
     Dates: start: 20110117, end: 20110221
  11. MIDAZOLAM HCL [Concomitant]
     Indication: SEDATION
     Route: 042
     Dates: start: 20110112, end: 20110222
  12. VANCOMYCIN HYCHLORIDE [Concomitant]
     Route: 041
     Dates: start: 20110123, end: 20110202
  13. REMINARON [Concomitant]
     Indication: DISSEMINATED INTRAVASCULAR COAGULATION
     Route: 041
     Dates: start: 20110131, end: 20110206
  14. MINOCYCLINE HCL [Suspect]
     Indication: INFECTION
     Route: 041
     Dates: start: 20110129, end: 20110131
  15. TAXOTERE [Suspect]
     Indication: MALIGNANT PERITONEAL NEOPLASM
     Route: 065
  16. GOSHA-JINKI-GAN [Concomitant]
     Indication: NEUROPATHY PERIPHERAL
     Route: 048
     Dates: start: 20080101, end: 20110116
  17. MAGNESIUM OXIDE [Concomitant]
     Indication: CONSTIPATION
     Route: 048
     Dates: start: 20080101, end: 20110117
  18. DOXIL [Suspect]
     Route: 042
     Dates: start: 20101124, end: 20101124
  19. ZOSYN [Suspect]
     Indication: INTERSTITIAL LUNG DISEASE
     Route: 041
     Dates: start: 20110114, end: 20110206
  20. CYCLOPHOSPHAMIDE [Suspect]
     Indication: MALIGNANT PERITONEAL NEOPLASM
     Route: 065
  21. ZITHROMAX [Concomitant]
     Indication: PROPHYLAXIS
     Route: 048
     Dates: start: 20110117, end: 20110117
  22. DALTEPARIN SODIUM [Concomitant]
     Route: 041
     Dates: start: 20110131, end: 20110211
  23. PENTAMIDINE ISETHIONATE [Concomitant]
     Indication: PNEUMOCYSTIS JIROVECI PNEUMONIA
     Route: 041
     Dates: start: 20110125
  24. CONCENTRATED HUMAN BLOOD PLATELETS [Concomitant]
     Indication: PLATELET COUNT DECREASED
     Route: 041
     Dates: start: 20110123
  25. CISPLATIN W/DOCETAXEL [Suspect]
     Indication: MALIGNANT PERITONEAL NEOPLASM
     Route: 065
  26. NORVASC [Concomitant]
     Indication: HYPERTENSION
     Route: 048
     Dates: end: 20110117
  27. HUMULIN R [Concomitant]
     Indication: DIABETES MELLITUS
     Route: 058
     Dates: start: 20110117, end: 20110221
  28. MUCOSTA [Concomitant]
     Indication: PROPHYLAXIS
     Route: 048
     Dates: start: 20101124, end: 20110117
  29. PREDOPA [Concomitant]
     Indication: BLOOD PRESSURE DECREASED
     Route: 041
     Dates: start: 20110117, end: 20110221
  30. VANCOMYCIN HYCHLORIDE [Concomitant]
     Indication: INFECTION
     Route: 041
     Dates: start: 20110123, end: 20110202
  31. MIDAZOLAM HCL [Concomitant]
     Indication: RESTLESSNESS
     Route: 042
     Dates: start: 20110112, end: 20110222
  32. RECOMODULIN [Concomitant]
     Indication: DISSEMINATED INTRAVASCULAR COAGULATION
     Route: 041
     Dates: start: 20110125, end: 20110130
  33. DOXIL [Suspect]
     Indication: MALIGNANT PERITONEAL NEOPLASM
     Route: 042
     Dates: start: 20101222, end: 20101222
  34. DAI-KENCHU-TO [Concomitant]
     Indication: CONSTIPATION
     Route: 048
     Dates: start: 20080101, end: 20110116
  35. SOLU-MEDROL [Concomitant]
     Route: 041
     Dates: start: 20110131, end: 20110202
  36. FUTHAN [Concomitant]
     Route: 041
     Dates: start: 20110123, end: 20110125
  37. FLUCONAZOLE [Concomitant]
     Indication: FUNGAL INFECTION
     Route: 042
     Dates: start: 20110128, end: 20110131
  38. DOXIL [Suspect]
     Route: 042
     Dates: start: 20101222, end: 20101222
  39. MINOCYCLINE HCL [Suspect]
     Indication: PYREXIA
     Route: 041
     Dates: start: 20110129, end: 20110131
  40. DALTEPARIN SODIUM [Concomitant]
     Indication: DISSEMINATED INTRAVASCULAR COAGULATION
     Route: 041
     Dates: start: 20110123, end: 20110125
  41. DALTEPARIN SODIUM [Concomitant]
     Route: 041
     Dates: start: 20110123, end: 20110125
  42. PENTAMIDINE ISETHIONATE [Concomitant]
     Indication: INTERSTITIAL LUNG DISEASE
     Route: 041
     Dates: start: 20110125

REACTIONS (15)
  - MALAISE [None]
  - BLOOD PRESSURE DECREASED [None]
  - DEHYDRATION [None]
  - RESTLESSNESS [None]
  - BONE MARROW FAILURE [None]
  - INTERSTITIAL LUNG DISEASE [None]
  - ANURIA [None]
  - PANCYTOPENIA [None]
  - DEEP VEIN THROMBOSIS [None]
  - CARDIAC FAILURE [None]
  - DISSEMINATED INTRAVASCULAR COAGULATION [None]
  - HEPATIC FUNCTION ABNORMAL [None]
  - FATIGUE [None]
  - PYREXIA [None]
  - DECREASED APPETITE [None]
